FAERS Safety Report 7431939-0 (Version None)
Quarter: 2011Q2

REPORT INFORMATION
  Report Type: 
  Country: None (occurrence: None)
  Receive Date: 20110422
  Receipt Date: 20110126
  Transmission Date: 20111010
  Serious: Yes (Other)
  Sender: FDA-Public Use
  Company Number: US-BRISTOL-MYERS SQUIBB COMPANY-15512320

PATIENT
  Age: 55 Year
  Sex: Female

DRUGS (2)
  1. PARAPLATIN [Suspect]
     Indication: OVARIAN CANCER
     Dosage: 1ST INF:DEC2010 2ND INF:21JAN2011 NO OF INF:2
     Route: 042
     Dates: start: 20101201
  2. TAXOL [Suspect]
     Indication: OVARIAN CANCER
     Dosage: 1ST INF:DEC2010 2ND INF:21JAN2011 NO OF INF:2
     Route: 042
     Dates: start: 20101201

REACTIONS (1)
  - RASH GENERALISED [None]
